FAERS Safety Report 6180438-5 (Version None)
Quarter: 2009Q2

REPORT INFORMATION
  Report Type: 
  Country: None (occurrence: None)
  Receive Date: 20090506
  Receipt Date: 20090428
  Transmission Date: 20091009
  Serious: Yes (Other)
  Sender: FDA-Public Use
  Company Number: US-JNJFOC-20090402203

PATIENT
  Sex: Female

DRUGS (6)
  1. ORTHO CYCLEN-28 [Suspect]
     Indication: DYSMENORRHOEA
     Route: 048
  2. ORTHO CYCLEN-28 [Suspect]
     Indication: DYSFUNCTIONAL UTERINE BLEEDING
     Route: 048
  3. ORTHO TRI-CYCLEN LO [Suspect]
     Indication: DRUG USE FOR UNKNOWN INDICATION
     Route: 065
  4. TOPAMAX [Concomitant]
     Indication: MIGRAINE
     Route: 048
  5. ELAVIL [Concomitant]
     Indication: MIGRAINE
     Route: 048
  6. SINGULAIR [Concomitant]
     Indication: ASTHMA
     Route: 048

REACTIONS (3)
  - OFF LABEL USE [None]
  - OVARIAN CYST [None]
  - URINARY TRACT INFECTION [None]
